FAERS Safety Report 9391857 (Version 1)
Quarter: 2013Q3

REPORT INFORMATION
  Report Type: Spontaneous
  Country: US (occurrence: US)
  Receive Date: 20130709
  Receipt Date: 20130709
  Transmission Date: 20140515
  Serious: Yes (Hospitalization, Disabling, Other)
  Sender: FDA-Public Use
  Company Number: US-009507513-2011SP028093

PATIENT
  Sex: Female
  Weight: 61.24 kg

DRUGS (1)
  1. NUVARING [Suspect]
     Indication: CONTRACEPTION
     Dosage: UNK
     Dates: start: 20090316, end: 20090620

REACTIONS (5)
  - Cerebral infarction [Recovering/Resolving]
  - Cerebral haemorrhage [Recovering/Resolving]
  - Feeling abnormal [Unknown]
  - Normochromic normocytic anaemia [Unknown]
  - Headache [Unknown]
